FAERS Safety Report 7389287-3 (Version None)
Quarter: 2011Q2

REPORT INFORMATION
  Report Type: 
  Country: None (occurrence: None)
  Receive Date: 20110401
  Receipt Date: 20110324
  Transmission Date: 20111010
  Serious: Yes (Hospitalization)
  Sender: FDA-Public Use
  Company Number: A0772848A

PATIENT
  Age: 51 Year
  Sex: Male
  Weight: 144.1 kg

DRUGS (7)
  1. METFORMIN HCL [Concomitant]
  2. NORVASC [Concomitant]
  3. ATENOLOL [Concomitant]
  4. AVANDIA [Suspect]
     Dosage: 8MG PER DAY
     Route: 048
     Dates: start: 20000531, end: 20070304
  5. ACCUPRIL [Concomitant]
  6. ALTACE [Concomitant]
  7. CLONIDINE [Concomitant]

REACTIONS (6)
  - HYPERTENSIVE EMERGENCY [None]
  - DEPRESSION [None]
  - CARDIAC FAILURE CONGESTIVE [None]
  - RENAL FAILURE ACUTE [None]
  - RESPIRATORY ARREST [None]
  - ATRIAL FIBRILLATION [None]
